FAERS Safety Report 23580270 (Version 1)
Quarter: 2024Q1

REPORT INFORMATION
  Report Type: Spontaneous
  Country: FR (occurrence: FR)
  Receive Date: 20240229
  Receipt Date: 20240229
  Transmission Date: 20240410
  Serious: Yes (Other)
  Sender: FDA-Public Use
  Company Number: FR-PFM-2024-01184

PATIENT

DRUGS (1)
  1. NERLYNX [Suspect]
     Active Substance: NERATINIB
     Indication: HER2 positive breast cancer
     Dosage: UNK
     Route: 048
     Dates: start: 20231207

REACTIONS (5)
  - Toxic skin eruption [Unknown]
  - Liver function test abnormal [Recovering/Resolving]
  - Condition aggravated [Recovering/Resolving]
  - Fatigue [Recovered/Resolved]
  - Drug intolerance [Unknown]
